FAERS Safety Report 4799599-5 (Version None)
Quarter: 2005Q4

REPORT INFORMATION
  Report Type: 
  Country: None (occurrence: None)
  Receive Date: 20051014
  Receipt Date: 20051007
  Transmission Date: 20060501
  Serious: Yes (Disabling)
  Sender: FDA-Public Use
  Company Number: US-MERCK-0510USA06434

PATIENT
  Sex: Male

DRUGS (3)
  1. VIOXX [Suspect]
     Indication: ARTHRALGIA
     Route: 048
     Dates: start: 20040501, end: 20040801
  2. VIOXX [Suspect]
     Route: 048
     Dates: start: 20040501, end: 20040501
  3. REMICADE [Concomitant]
     Route: 065
     Dates: start: 20040101, end: 20040101

REACTIONS (4)
  - BLINDNESS [None]
  - BLOOD PRESSURE INCREASED [None]
  - CARDIOVASCULAR DISORDER [None]
  - PRESCRIBED OVERDOSE [None]
